FAERS Safety Report 7560093-X (Version None)
Quarter: 2011Q2

REPORT INFORMATION
  Report Type: 
  Country: None (occurrence: None)
  Receive Date: 20110617
  Receipt Date: 20110617
  Transmission Date: 20111010
  Serious: Yes (Other)
  Sender: FDA-Public Use
  Company Number: None

PATIENT
  Sex: Male
  Weight: 75.2971 kg

DRUGS (2)
  1. PRADAXA [Suspect]
     Indication: ATRIAL FIBRILLATION
     Dates: start: 20110606, end: 20110610
  2. METOPROLOL ER 100 MG BID [Concomitant]
     Dates: start: 20110610, end: 20110616

REACTIONS (1)
  - LIVER FUNCTION TEST ABNORMAL [None]
